FAERS Safety Report 12266226 (Version 1)
Quarter: 2016Q2

REPORT INFORMATION
  Report Type: Spontaneous
  Country: None (occurrence: None)
  Receive Date: 20160413
  Receipt Date: 20160413
  Transmission Date: 20160815
  Serious: No
  Sender: FDA-Public Use
  Company Number: None

PATIENT
  Age: 63 Year
  Sex: Female

DRUGS (1)
  1. SOVALDI [Suspect]
     Active Substance: SOFOSBUVIR
     Indication: PRODUCT USED FOR UNKNOWN INDICATION
     Dosage: 1TQD
     Route: 048
     Dates: start: 20160112

REACTIONS (3)
  - Endoscopy abnormal [None]
  - Abdominal distension [None]
  - Ulcer [None]

NARRATIVE: CASE EVENT DATE: 20160412
